FAERS Safety Report 9447692 (Version 2)
Quarter: 2014Q1

REPORT INFORMATION
  Report Type: Spontaneous
  Country: US (occurrence: US)
  Receive Date: 20130808
  Receipt Date: 20140325
  Transmission Date: 20141002
  Serious: Yes (Hospitalization, Other)
  Sender: FDA-Public Use
  Company Number: US-BAYER-2013-094533

PATIENT
  Age: 19 Year
  Sex: Female

DRUGS (6)
  1. YAZ [Suspect]
     Dosage: UNK
     Dates: start: 2006
  2. YASMIN [Suspect]
     Dosage: UNK
     Dates: start: 2006
  3. FLUOXETINE [Concomitant]
     Indication: DEPRESSION
  4. FLUOXETINE [Concomitant]
     Indication: ANXIETY
  5. COREG [Concomitant]
  6. LISINOPRIL [Concomitant]

REACTIONS (6)
  - Cardiac ventricular thrombosis [None]
  - Thrombosis [None]
  - Injury [None]
  - Pain [None]
  - Fear of disease [None]
  - Pain [None]
